FAERS Safety Report 16451220 (Version 1)
Quarter: 2019Q3

REPORT INFORMATION
  Report Type: Spontaneous
  Country: US (occurrence: US)
  Receive Date: 20190618
  Receipt Date: 20190618
  Transmission Date: 20191004
  Serious: Yes (Life-Threatening)
  Sender: FDA-Public Use
  Company Number: None

PATIENT
  Age: 54 Year
  Sex: Female

DRUGS (4)
  1. CITALOPRAM [Concomitant]
     Active Substance: CITALOPRAM HYDROBROMIDE
     Dates: start: 20170504
  2. AMPHETAMINE-DEXTROAMPHETAMINE ER 30MG [Concomitant]
     Dates: start: 20170627
  3. AMPHETAMINE-DEXTROAMPHETAMINE TABS 15MG [Concomitant]
     Dates: start: 20170818
  4. BUPROPION XL [Suspect]
     Active Substance: BUPROPION
     Indication: AFFECTIVE DISORDER
     Route: 048
     Dates: start: 20190614, end: 20190617

REACTIONS (3)
  - Feeling abnormal [None]
  - Suicidal behaviour [None]
  - Abdominal discomfort [None]

NARRATIVE: CASE EVENT DATE: 20190618
